FAERS Safety Report 25081311 (Version 1)
Quarter: 2025Q1

REPORT INFORMATION
  Report Type: Spontaneous
  Country: FR (occurrence: FR)
  Receive Date: 20250316
  Receipt Date: 20250316
  Transmission Date: 20250408
  Serious: Yes (Other)
  Sender: AUROBINDO
  Company Number: FR-AFSSAPS-SE2025000202

PATIENT
  Age: 12 Year
  Sex: Male

DRUGS (2)
  1. METHYLPHENIDATE [Suspect]
     Active Substance: METHYLPHENIDATE
     Indication: Attention deficit hyperactivity disorder
     Route: 048
     Dates: start: 202206
  2. MELATONIN [Suspect]
     Active Substance: MELATONIN
     Indication: Insomnia
     Dosage: 2 MILLIGRAM, ONCE A DAY
     Route: 048
     Dates: start: 202309

REACTIONS (2)
  - Disease recurrence [Not Recovered/Not Resolved]
  - Petit mal epilepsy [Not Recovered/Not Resolved]

NARRATIVE: CASE EVENT DATE: 20230801
